FAERS Safety Report 5765444-4 (Version None)
Quarter: 2008Q2

REPORT INFORMATION
  Report Type: 
  Country: None (occurrence: None)
  Receive Date: 20080605
  Receipt Date: 20080522
  Transmission Date: 20081010
  Serious: Yes (Death, Hospitalization, Other)
  Sender: FDA-Public Use
  Company Number: 2008001194

PATIENT
  Age: 76 Year
  Sex: Male

DRUGS (5)
  1. ERLOTINIB (ERLOTINIB) (TABLET) (ERLOTINIB) [Suspect]
     Indication: NON-SMALL CELL LUNG CANCER METASTATIC
     Dosage: (150 MG,QD),ORAL
     Route: 048
     Dates: start: 20071121, end: 20080312
  2. NOVALGIN (METAMIZOLE SODIUM) [Concomitant]
  3. ENOXAPARIN SODIUM [Concomitant]
  4. NEXIUM [Concomitant]
  5. LYRICA OXYCODONE (OXYCODONE) [Concomitant]

REACTIONS (6)
  - CARDIAC FAILURE [None]
  - CARDIOMEGALY [None]
  - DYSPNOEA EXERTIONAL [None]
  - NEOPLASM PROGRESSION [None]
  - PLEURAL EFFUSION [None]
  - PULMONARY CONGESTION [None]
